FAERS Safety Report 6646724-7 (Version None)
Quarter: 2010Q1

REPORT INFORMATION
  Report Type: 
  Country: None (occurrence: None)
  Receive Date: 20100317
  Receipt Date: 20100302
  Transmission Date: 20100710
  Serious: Yes (Hospitalization)
  Sender: FDA-Public Use
  Company Number: 2010000170

PATIENT
  Age: 72 Year
  Sex: Male

DRUGS (5)
  1. ERLOTINIB HYDROCHLORIDE [Suspect]
     Indication: RENAL CELL CARCINOMA
     Dosage: 150 MG, QD, ORAL; 100 MG, QD, ORAL; 50 MG, QD, ORAL
     Route: 048
     Dates: start: 20040909, end: 20050201
  2. ERLOTINIB HYDROCHLORIDE [Suspect]
     Indication: RENAL CELL CARCINOMA
     Dosage: 150 MG, QD, ORAL; 100 MG, QD, ORAL; 50 MG, QD, ORAL
     Route: 048
     Dates: start: 20050209, end: 20071024
  3. ERLOTINIB HYDROCHLORIDE [Suspect]
     Indication: RENAL CELL CARCINOMA
     Dosage: 150 MG, QD, ORAL; 100 MG, QD, ORAL; 50 MG, QD, ORAL
     Route: 048
     Dates: start: 20071025, end: 20091208
  4. BEVACIZUMAB [Suspect]
     Indication: RENAL CELL CARCINOMA
     Dosage: 10 MG/KG, Q2W, INTRAVENOUS
     Route: 042
     Dates: start: 20040909, end: 20091208
  5. GLEEVEC [Suspect]
     Indication: RENAL CELL CARCINOMA
     Dosage: 400 MG, ORAL
     Route: 048
     Dates: start: 20040909, end: 20050909

REACTIONS (1)
  - ISCHAEMIC STROKE [None]
